FAERS Safety Report 19882232 (Version 2)
Quarter: 2021Q4

REPORT INFORMATION
  Report Type: Report from Study
  Country: MX (occurrence: MX)
  Receive Date: 20210924
  Receipt Date: 20211011
  Transmission Date: 20220303
  Serious: No
  Sender: FDA-Public Use
  Company Number: NVSC2021MX097354

PATIENT
  Sex: Female
  Weight: 76 kg

DRUGS (2)
  1. METFORMIN HYDROCHLORIDE\VILDAGLIPTIN [Suspect]
     Active Substance: METFORMIN HYDROCHLORIDE\VILDAGLIPTIN
     Indication: Diabetes mellitus
     Dosage: 1 DF, BID (50/500MG), APPROX FROM 2018
     Route: 048
     Dates: start: 2018
  2. CANDESARTAN CILEXETIL\HYDROCHLOROTHIAZIDE [Concomitant]
     Active Substance: CANDESARTAN CILEXETIL\HYDROCHLOROTHIAZIDE
     Indication: Hypertension
     Dosage: 1 DF, QD (AT NIGHT), STARTED 6 YEARS AGO
     Route: 048

REACTIONS (1)
  - Weight fluctuation [Recovered/Resolved]

NARRATIVE: CASE EVENT DATE: 20180101
